FAERS Safety Report 6103155-6 (Version None)
Quarter: 2009Q1

REPORT INFORMATION
  Report Type: 
  Country: None (occurrence: None)
  Receive Date: 20090305
  Receipt Date: 20090223
  Transmission Date: 20090719
  Serious: Yes (Other)
  Sender: FDA-Public Use
  Company Number: US-PFIZER INC-2009174452

PATIENT
  Sex: Female
  Weight: 72.5 kg

DRUGS (5)
  1. AROMASIN [Suspect]
     Indication: BONE NEOPLASM MALIGNANT
     Dosage: 25 MG, 1X/DAY
     Dates: start: 20081101
  2. PAROXETINE HCL [Concomitant]
     Dosage: 20 MG, 1X/DAY
  3. CLONIDINE [Concomitant]
     Dosage: UNK
  4. PREVACID [Concomitant]
     Dosage: UNK
  5. LORTAB [Concomitant]
     Dosage: AS NEEDED

REACTIONS (9)
  - ARTHRALGIA [None]
  - ARTHROPATHY [None]
  - BLOOD PRESSURE INCREASED [None]
  - CARPAL TUNNEL SYNDROME [None]
  - CONDITION AGGRAVATED [None]
  - FATIGUE [None]
  - MYALGIA [None]
  - PARAESTHESIA [None]
  - WEIGHT INCREASED [None]
